FAERS Safety Report 13845090 (Version 1)
Quarter: 2017Q3

REPORT INFORMATION
  Report Type: Spontaneous
  Country: US (occurrence: US)
  Receive Date: 20170808
  Receipt Date: 20170808
  Transmission Date: 20171127
  Serious: No
  Sender: FDA-Public Use
  Company Number: US-009507513-1707USA010215

PATIENT
  Age: 19 Year
  Sex: Female
  Weight: 97.51 kg

DRUGS (8)
  1. LIRAGLUTIDE [Suspect]
     Active Substance: LIRAGLUTIDE
     Indication: OBESITY
     Dosage: 1.8 MG, QD
     Route: 058
  2. PROSCAR [Suspect]
     Active Substance: FINASTERIDE
     Indication: HIDRADENITIS
     Dosage: 5 MG, QD
     Route: 048
  3. PROSCAR [Suspect]
     Active Substance: FINASTERIDE
     Indication: OBESITY
  4. DAPSONE. [Suspect]
     Active Substance: DAPSONE
     Indication: OBESITY
  5. METFORMIN [Suspect]
     Active Substance: METFORMIN HYDROCHLORIDE
     Indication: OBESITY
  6. METFORMIN [Suspect]
     Active Substance: METFORMIN HYDROCHLORIDE
     Indication: HIDRADENITIS
     Dosage: 2000 MG, QD
  7. DAPSONE. [Suspect]
     Active Substance: DAPSONE
     Indication: HIDRADENITIS
     Dosage: 100 MG, QD
  8. LIRAGLUTIDE [Suspect]
     Active Substance: LIRAGLUTIDE
     Indication: HIDRADENITIS
     Dosage: 0.6 MG, QD
     Route: 058

REACTIONS (2)
  - Off label use [Unknown]
  - Therapeutic response unexpected [Unknown]
